FAERS Safety Report 25618612 (Version 3)
Quarter: 2025Q3

REPORT INFORMATION
  Report Type: Spontaneous
  Country: CL (occurrence: CL)
  Receive Date: 20250729
  Receipt Date: 20250917
  Transmission Date: 20251020
  Serious: No
  Sender: PFIZER
  Company Number: CL-PFIZER INC-PV202500088232

PATIENT
  Age: 14 Year
  Sex: Male

DRUGS (1)
  1. GENOTROPIN [Suspect]
     Active Substance: SOMATROPIN
     Dosage: UNK UNK, DAILY

REACTIONS (4)
  - Drug dose omission by device [Unknown]
  - Device power source issue [Unknown]
  - Device information output issue [Unknown]
  - Device malfunction [Unknown]

NARRATIVE: CASE EVENT DATE: 20250720
